FAERS Safety Report 12752589 (Version 1)
Quarter: 2016Q3

REPORT INFORMATION
  Report Type: Spontaneous
  Country: US (occurrence: US)
  Receive Date: 20160916
  Receipt Date: 20160916
  Transmission Date: 20161109
  Serious: No
  Sender: FDA-Public Use
  Company Number: US-ASTRAZENECA-2016SE97865

PATIENT
  Age: 63 Year
  Sex: Female
  Weight: 64.9 kg

DRUGS (3)
  1. NEXIUM 24HR [Suspect]
     Active Substance: ESOMEPRAZOLE MAGNESIUM
     Indication: BARRETT^S OESOPHAGUS
     Dosage: 22.3MG UNKNOWN
     Route: 048
     Dates: start: 2016
  2. NEXIUM 24HR [Suspect]
     Active Substance: ESOMEPRAZOLE MAGNESIUM
     Indication: BARRETT^S OESOPHAGUS
     Dosage: 20 MG, ONCE IN THE MORNING UNKNOWN
     Route: 048
     Dates: start: 201609
  3. PREMARIN [Concomitant]
     Active Substance: ESTROGENS, CONJUGATED
     Dosage: ONCE A WEEK, TOPICALLY ON HER SKIN
     Route: 061

REACTIONS (6)
  - Off label use [Unknown]
  - Product use issue [Unknown]
  - Dry mouth [Not Recovered/Not Resolved]
  - Sleep disorder [Not Recovered/Not Resolved]
  - Tongue dry [Not Recovered/Not Resolved]
  - Tongue disorder [Not Recovered/Not Resolved]

NARRATIVE: CASE EVENT DATE: 201608
